FAERS Safety Report 24326876 (Version 1)
Quarter: 2024Q3

REPORT INFORMATION
  Report Type: Spontaneous
  Country: CN (occurrence: CN)
  Receive Date: 20240917
  Receipt Date: 20240917
  Transmission Date: 20241017
  Serious: Yes (Death)
  Sender: Amivas
  Company Number: CN-AMIVAS INC.-20240900010

PATIENT

DRUGS (4)
  1. ARTESUNATE [Suspect]
     Active Substance: ARTESUNATE
     Indication: Malaria
     Dosage: 120 MILLIGRAM
     Route: 042
     Dates: start: 20240108
  2. ARTESUNATE [Suspect]
     Active Substance: ARTESUNATE
     Dosage: 120 MILLIGRAM, (AT 12 HOURS)
     Route: 042
     Dates: start: 20240108
  3. ARTESUNATE [Suspect]
     Active Substance: ARTESUNATE
     Dosage: 120 MILLIGRAM, (AT 24 HOURS)
     Route: 042
     Dates: start: 20240108
  4. ARTESUNATE [Suspect]
     Active Substance: ARTESUNATE
     Dosage: 120 MILLIGRAM, (AT 24 HOURS)
     Route: 042
     Dates: start: 20240110

REACTIONS (1)
  - Drug resistance [Fatal]

NARRATIVE: CASE EVENT DATE: 20240101
